FAERS Safety Report 5389672-5 (Version None)
Quarter: 2007Q3

REPORT INFORMATION
  Report Type: 
  Country: None (occurrence: None)
  Receive Date: 20070717
  Receipt Date: 20070710
  Transmission Date: 20080115
  Serious: Yes (Hospitalization)
  Sender: FDA-Public Use
  Company Number: US-AMGEN-US233203

PATIENT
  Sex: Male

DRUGS (19)
  1. EPOGEN [Suspect]
     Indication: DIALYSIS
     Route: 042
  2. ZYRTEC [Concomitant]
  3. VALIUM [Concomitant]
  4. COLACE [Concomitant]
  5. FLONASE [Concomitant]
  6. ATARAX [Concomitant]
  7. LABETALOL HCL [Concomitant]
  8. PRINIVIL [Concomitant]
  9. NEPHROCAPS [Concomitant]
  10. PRINIVIL [Concomitant]
  11. NEPHROCAPS [Concomitant]
  12. PERCOCET [Concomitant]
  13. PAXIL [Concomitant]
  14. ZOLOFT [Concomitant]
  15. CATAPRES [Concomitant]
  16. PEPCID [Concomitant]
  17. AVELOX [Concomitant]
  18. RENAGEL [Concomitant]
  19. IRON [Concomitant]

REACTIONS (2)
  - HAEMOGLOBIN DECREASED [None]
  - PERICARDITIS [None]
